FAERS Safety Report 10169931 (Version 1)
Quarter: 2014Q2

REPORT INFORMATION
  Report Type: Report from Study
  Country: CA (occurrence: CA)
  Receive Date: 20140513
  Receipt Date: 20140513
  Transmission Date: 20141212
  Serious: Yes (Other)
  Sender: FDA-Public Use
  Company Number: CA-JNJFOC-20140503889

PATIENT
  Age: 50 Year
  Sex: Male
  Weight: 75 kg

DRUGS (12)
  1. REMICADE [Suspect]
     Indication: CROHN^S DISEASE
     Route: 042
     Dates: start: 20140506
  2. REMICADE [Suspect]
     Indication: CROHN^S DISEASE
     Route: 042
     Dates: start: 20090305
  3. EFFEXOR [Concomitant]
     Route: 065
  4. TRAZODONE [Concomitant]
     Route: 065
  5. METHADONE [Concomitant]
     Route: 065
  6. ZOPICLONE [Concomitant]
     Route: 065
  7. VITAMIN B12 [Concomitant]
     Route: 065
  8. CALCIUM [Concomitant]
     Route: 065
  9. VITAMIN D [Concomitant]
     Route: 065
  10. ATENOLOL [Concomitant]
     Route: 065
  11. CLONIDINE [Concomitant]
     Route: 065
  12. MIRTAZAPINE [Concomitant]
     Route: 065

REACTIONS (1)
  - Pancreatitis [Recovering/Resolving]
